FAERS Safety Report 22597494 (Version 1)
Quarter: 2023Q2

REPORT INFORMATION
  Report Type: Spontaneous
  Country: US (occurrence: US)
  Receive Date: 20230614
  Receipt Date: 20230614
  Transmission Date: 20230722
  Serious: No
  Sender: FDA-Public Use
  Company Number: US-ENDO PHARMACEUTICALS INC-2022-006467

PATIENT
  Age: 3 Year
  Sex: Female
  Weight: 20.862 kg

DRUGS (4)
  1. SUPPRELIN LA [Suspect]
     Active Substance: HISTRELIN ACETATE
     Indication: Precocious puberty
     Dosage: UNK UNKNOWN, UNKNOWN
     Route: 065
     Dates: start: 20220519
  2. SUPPRELIN LA [Suspect]
     Active Substance: HISTRELIN ACETATE
     Indication: Precocious puberty
     Dosage: UNK UNKNOWN, UNKNOWN
     Route: 065
     Dates: start: 20220519
  3. SUPPRELIN LA [Suspect]
     Active Substance: HISTRELIN ACETATE
     Indication: Pituitary gonadotropin hyperfunction
     Dosage: UNK UNKNOWN, UNKNOWN
     Route: 065
     Dates: start: 202104
  4. SUPPRELIN LA [Suspect]
     Active Substance: HISTRELIN ACETATE
     Indication: Pituitary gonadotropin hyperfunction
     Dosage: UNK UNKNOWN, UNKNOWN
     Route: 065
     Dates: start: 202104

REACTIONS (3)
  - Precocious puberty [Not Recovered/Not Resolved]
  - Condition aggravated [Not Recovered/Not Resolved]
  - Drug ineffective [Not Recovered/Not Resolved]

NARRATIVE: CASE EVENT DATE: 20220501
